FAERS Safety Report 7581442-2 (Version None)
Quarter: 2011Q2

REPORT INFORMATION
  Report Type: 
  Country: None (occurrence: None)
  Receive Date: 20110629
  Receipt Date: 20110616
  Transmission Date: 20111010
  Serious: Yes (Hospitalization)
  Sender: FDA-Public Use
  Company Number: PHHY2011GB54382

PATIENT
  Age: 28 Year
  Sex: Male

DRUGS (3)
  1. AZATHIOPRINE [Suspect]
     Indication: LUNG TRANSPLANT
  2. CYCLOSPORINE [Suspect]
     Indication: LUNG TRANSPLANT
  3. PREDNISONE [Suspect]
     Indication: LUNG TRANSPLANT

REACTIONS (10)
  - VOMITING [None]
  - EOSINOPHILIA [None]
  - INTUSSUSCEPTION [None]
  - APPENDICITIS PERFORATED [None]
  - ABDOMINAL WALL DISORDER [None]
  - ABDOMINAL PAIN LOWER [None]
  - SMALL INTESTINAL OBSTRUCTION [None]
  - WEIGHT DECREASED [None]
  - INFREQUENT BOWEL MOVEMENTS [None]
  - APPENDICEAL ABSCESS [None]
